FAERS Safety Report 15647621 (Version 2)
Quarter: 2018Q4

REPORT INFORMATION
  Report Type: Report from Study
  Country: US (occurrence: US)
  Receive Date: 20181122
  Receipt Date: 20181226
  Transmission Date: 20190205
  Serious: Yes (Hospitalization)
  Sender: FDA-Public Use
  Company Number: US-PFIZER INC-2018421330

PATIENT
  Age: 72 Year
  Sex: Female

DRUGS (3)
  1. IBRANCE [Suspect]
     Active Substance: PALBOCICLIB
     Dosage: UNK
     Dates: start: 20181106
  2. IBRANCE [Suspect]
     Active Substance: PALBOCICLIB
     Dosage: 100 MG, CYCLIC (DAILY X 21 DAYS, OFF X 7 DAYS/TAKES IBRANCE FOR 21 DAYS THEN OFF FOR 7 DAYS)
     Route: 048
     Dates: start: 20180925, end: 20181028
  3. IBRANCE [Suspect]
     Active Substance: PALBOCICLIB
     Indication: BREAST CANCER
     Dosage: 100 MG, CYCLIC (DAILY X 21 DAYS, OFF X 7 DAYS/TAKES IBRANCE FOR 21 DAYS THEN OFF FOR 7 DAYS)
     Route: 048
     Dates: start: 20180925

REACTIONS (9)
  - Diarrhoea [Unknown]
  - White blood cell count decreased [Unknown]
  - Vomiting [Unknown]
  - Red blood cell count decreased [Unknown]
  - Asthenia [Unknown]
  - Fatigue [Unknown]
  - Headache [Unknown]
  - Constipation [Unknown]
  - Alopecia [Unknown]

NARRATIVE: CASE EVENT DATE: 2018
